FAERS Safety Report 15418186 (Version 2)
Quarter: 2018Q4

REPORT INFORMATION
  Report Type: Spontaneous
  Country: JP (occurrence: JP)
  Receive Date: 20180924
  Receipt Date: 20181211
  Transmission Date: 20190204
  Serious: Yes (Life-Threatening)
  Sender: FDA-Public Use
  Company Number: JP-MYLANLABS-2018M1068976

PATIENT
  Age: 29 Year
  Sex: Female
  Weight: 59 kg

DRUGS (12)
  1. CLOXAZOLAM [Concomitant]
     Active Substance: CLOXAZOLAM
     Indication: SCHIZOPHRENIA
     Route: 048
  2. BUPIVACAINE. [Concomitant]
     Active Substance: BUPIVACAINE
     Indication: EPIDURAL ANAESTHESIA
     Dosage: 8 MILLIGRAM
     Route: 050
  3. FENTANYL. [Concomitant]
     Active Substance: FENTANYL
     Indication: EPIDURAL ANAESTHESIA
     Dosage: 10 MICROGRAM
     Route: 050
  4. PHENYLEPHRINE HYDROCHLORIDE. [Suspect]
     Active Substance: PHENYLEPHRINE HYDROCHLORIDE
     Indication: CARDIAC ARREST
     Dosage: .4 MILLIGRAM
     Route: 065
  5. ATROPINE. [Suspect]
     Active Substance: ATROPINE
     Indication: RESPIRATORY FAILURE
  6. EPINEPHRINE. [Suspect]
     Active Substance: EPINEPHRINE
     Indication: CARDIAC ARREST
     Dosage: 2 DOSES
     Route: 042
  7. BUPIVACAINE. [Concomitant]
     Active Substance: BUPIVACAINE
     Indication: SPINAL ANAESTHESIA
  8. EPINEPHRINE. [Suspect]
     Active Substance: EPINEPHRINE
     Indication: RESPIRATORY FAILURE
  9. ATROPINE. [Suspect]
     Active Substance: ATROPINE
     Indication: CARDIAC ARREST
     Dosage: ADMINISTERED 2 TIMES (TOTAL 1MG)
     Route: 065
  10. PHENYLEPHRINE HYDROCHLORIDE. [Suspect]
     Active Substance: PHENYLEPHRINE HYDROCHLORIDE
     Indication: RESPIRATORY FAILURE
  11. FENTANYL. [Concomitant]
     Active Substance: FENTANYL
     Indication: SPINAL ANAESTHESIA
  12. NORADRENALIN                       /00127501/ [Concomitant]
     Active Substance: NOREPINEPHRINE\NOREPINEPHRINE BITARTRATE
     Indication: HYPOTENSION
     Dosage: ADMINISTERED MULTIPLE TIMES
     Route: 065

REACTIONS (1)
  - Treatment failure [Unknown]
